FAERS Safety Report 21066916 (Version 1)
Quarter: 2022Q3

REPORT INFORMATION
  Report Type: Spontaneous
  Country: US (occurrence: US)
  Receive Date: 20220712
  Receipt Date: 20220712
  Transmission Date: 20221027
  Serious: No
  Sender: FDA-Public Use
  Company Number: US-TARO PHARMACEUTICALS USA INC.-2022TAR00535

PATIENT

DRUGS (4)
  1. FLUOCINOLONE ACETONIDE [Suspect]
     Active Substance: FLUOCINOLONE ACETONIDE
     Indication: Eczema
     Dosage: TOPICAL TO SCALP
     Route: 061
  2. KETOCONAZOLE [Concomitant]
     Active Substance: KETOCONAZOLE
     Indication: Product used for unknown indication
     Dosage: UNK, EVERY 3 DAYS
     Route: 061
  3. Head + Shoulder^s Clinical Strength [Concomitant]
     Indication: Product used for unknown indication
     Dosage: UNK
     Route: 061
  4. NEUTROGENA TGEL THERAPEUTIC [Concomitant]
     Active Substance: COAL TAR
     Indication: Product used for unknown indication
     Dosage: UNK
     Route: 061

REACTIONS (2)
  - Seborrhoea [Not Recovered/Not Resolved]
  - Product use in unapproved indication [Unknown]
